FAERS Safety Report 18628814 (Version 2)
Quarter: 2020Q4

REPORT INFORMATION
  Report Type: Report from Study
  Country: US (occurrence: US)
  Receive Date: 20201217
  Receipt Date: 20201218
  Transmission Date: 20210114
  Serious: Yes (Life-Threatening, Other)
  Sender: FDA-Public Use
  Company Number: NVSC2020US333460

PATIENT
  Age: 7 Year
  Sex: Female

DRUGS (3)
  1. FLUDARABINE [Concomitant]
     Active Substance: FLUDARABINE PHOSPHATE
     Indication: CHEMOTHERAPY
     Dosage: UNK
     Route: 065
  2. KYMRIAH [Suspect]
     Active Substance: TISAGENLECLEUCEL
     Indication: B-CELL TYPE ACUTE LEUKAEMIA
     Dosage: UNK UNK, ONCE/SINGLE
     Route: 065
     Dates: start: 20200401
  3. CYCLOPHOSPHAMIDE. [Concomitant]
     Active Substance: CYCLOPHOSPHAMIDE
     Indication: CHEMOTHERAPY
     Dosage: UNK
     Route: 065

REACTIONS (16)
  - Hemiparesis [Unknown]
  - Haemoglobin decreased [Unknown]
  - Motor dysfunction [Unknown]
  - Precursor B-lymphoblastic lymphoma recurrent [Unknown]
  - Cytopenia [Unknown]
  - Treatment failure [Unknown]
  - Paraparesis [Unknown]
  - Depressed level of consciousness [Unknown]
  - Thrombocytopenia [Not Recovered/Not Resolved]
  - Neurotoxicity [Not Recovered/Not Resolved]
  - Brain oedema [Unknown]
  - Haematocrit decreased [Unknown]
  - Tumour lysis syndrome [Unknown]
  - Hypogammaglobulinaemia [Unknown]
  - Lymphocyte count decreased [Unknown]
  - White blood cell count decreased [Unknown]
